FAERS Safety Report 8217904-4 (Version None)
Quarter: 2012Q1

REPORT INFORMATION
  Report Type: 
  Country: None (occurrence: None)
  Receive Date: 20120319
  Receipt Date: 20120309
  Transmission Date: 20120608
  Serious: Yes (Hospitalization)
  Sender: FDA-Public Use
  Company Number: US-BAYER-2011-040581

PATIENT
  Age: 35 Year
  Sex: Female
  Weight: 62.585 kg

DRUGS (20)
  1. TRAZODONE HCL [Concomitant]
     Indication: DEPRESSION
     Dosage: 50 MG, 1-2 TABS AT BEDTIME
     Dates: start: 20070701, end: 20090701
  2. VICODIN [Concomitant]
  3. MORPHINE [Concomitant]
  4. ACETAMINOPHEN AND HYDROCODONE BITARTRATE [Concomitant]
     Dosage: 5-500
  5. RISPERDAL [Concomitant]
     Dosage: 1 MG, UNK
  6. ACETAMINOPHEN AND HYDROCODONE BITARTRATE [Concomitant]
     Indication: PAIN
     Dosage: 5-500
  7. DESIPRAMINE HCL [Concomitant]
     Dosage: 10 MG, UNK
  8. YASMIN [Suspect]
     Indication: CONTRACEPTION
     Dosage: UNK
     Dates: start: 20070501, end: 20071119
  9. DARVOCET [Concomitant]
     Indication: PAIN
     Dosage: 650 MG, PRN
     Dates: start: 20071113, end: 20071119
  10. ETODOLAC [Concomitant]
     Dosage: 400 MG, UNK
  11. PREVACID [Concomitant]
     Dosage: UNK UNK, BID
  12. PROPOXYPHENE HYDROCHLORIDE [Concomitant]
     Dosage: 100 MG, UNK
  13. CITALOPRAM HYDROBROMIDE [Concomitant]
     Dosage: 40 MG, UNK
  14. OMEPRAZOLE [Concomitant]
  15. TORADOL [Concomitant]
  16. NEURONTIN [Concomitant]
  17. TYLENOL [Concomitant]
     Dosage: 650 MG, UNK
  18. MS CONTIN [Concomitant]
  19. GABAPENTIN [Concomitant]
     Indication: PAIN
     Dosage: 300 MG, BID
     Dates: start: 20070701, end: 20090701
  20. MOTRIN [Concomitant]

REACTIONS (10)
  - PULMONARY EMBOLISM [None]
  - ANXIETY [None]
  - DEEP VEIN THROMBOSIS [None]
  - PAIN [None]
  - EMOTIONAL DISTRESS [None]
  - THROMBOSIS [None]
  - GAIT DISTURBANCE [None]
  - DYSPNOEA [None]
  - GENERAL PHYSICAL HEALTH DETERIORATION [None]
  - PAIN IN EXTREMITY [None]
